FAERS Safety Report 15820196 (Version 1)
Quarter: 2019Q1

REPORT INFORMATION
  Report Type: Report from Study
  Country: IT (occurrence: IT)
  Receive Date: 20190114
  Receipt Date: 20190114
  Transmission Date: 20190417
  Serious: Yes (Death, Other)
  Sender: FDA-Public Use
  Company Number: IT-ROCHE-2239302

PATIENT

DRUGS (2)
  1. TACROLIMUS. [Suspect]
     Active Substance: TACROLIMUS
     Indication: PROPHYLAXIS AGAINST TRANSPLANT REJECTION
     Route: 065
  2. MYCOPHENOLATE MOFETIL. [Suspect]
     Active Substance: MYCOPHENOLATE MOFETIL
     Indication: PROPHYLAXIS AGAINST TRANSPLANT REJECTION
     Route: 048

REACTIONS (32)
  - Interstitial lung disease [Unknown]
  - Oedema [Unknown]
  - Skin cancer [Unknown]
  - Laryngeal cancer [Unknown]
  - Headache [Unknown]
  - Diabetes mellitus [Unknown]
  - Pancreatic carcinoma [Unknown]
  - Wound complication [Unknown]
  - Hepatocellular carcinoma [Unknown]
  - Stomatitis [Unknown]
  - Hypertension [Unknown]
  - Lung neoplasm malignant [Unknown]
  - Anaemia [Unknown]
  - Gastrointestinal disorder [Unknown]
  - Dyspepsia [Unknown]
  - Cardiotoxicity [Fatal]
  - Neoplasm malignant [Fatal]
  - Renal failure [Fatal]
  - Post transplant lymphoproliferative disorder [Unknown]
  - Thrombocytopenia [Unknown]
  - Incisional hernia [Unknown]
  - Proteinuria [Unknown]
  - Hyperlipidaemia [Unknown]
  - Leukopenia [Unknown]
  - Tremor [Unknown]
  - Hepatitis C [Fatal]
  - Biliary tract disorder [Fatal]
  - Hepatic artery thrombosis [Unknown]
  - Cytomegalovirus infection [Unknown]
  - Infection [Unknown]
  - Abdominal distension [Unknown]
  - Diarrhoea [Unknown]
